FAERS Safety Report 20814286 (Version 2)
Quarter: 2022Q2

REPORT INFORMATION
  Report Type: Spontaneous
  Country: US (occurrence: None)
  Receive Date: 20220511
  Receipt Date: 20220608
  Transmission Date: 20220721
  Serious: No
  Sender: FDA-Public Use
  Company Number: 2022A175423

PATIENT
  Age: 21826 Day
  Sex: Male
  Weight: 90.7 kg

DRUGS (1)
  1. BUDESONIDE\FORMOTEROL\GLYCOPYRRONIUM [Suspect]
     Active Substance: BUDESONIDE\FORMOTEROL\GLYCOPYRRONIUM
     Indication: Asthma
     Dosage: 160MCG/9MCG/4.8MCG BREZTRI INHALER 1 PUFF TWICE DAILY
     Route: 055
     Dates: start: 2022

REACTIONS (7)
  - Chest discomfort [Unknown]
  - Product use issue [Unknown]
  - Wrong technique in device usage process [Unknown]
  - Inappropriate schedule of product administration [Unknown]
  - Product dose omission issue [Unknown]
  - Device use issue [Unknown]
  - Device malfunction [Unknown]

NARRATIVE: CASE EVENT DATE: 20220504
